FAERS Safety Report 9439206 (Version 2)
Quarter: 2013Q3

REPORT INFORMATION
  Report Type: Spontaneous
  Country: US (occurrence: US)
  Receive Date: 20130804
  Receipt Date: 20130920
  Transmission Date: 20140515
  Serious: No
  Sender: FDA-Public Use
  Company Number: US-TEVA-421821USA

PATIENT
  Age: 22 Year
  Sex: Female
  Weight: 68.55 kg

DRUGS (5)
  1. PARAGARD 380A [Suspect]
     Indication: CONTRACEPTION
     Route: 015
     Dates: start: 201202, end: 201307
  2. LITHIUM [Concomitant]
     Indication: BIPOLAR DISORDER
  3. ADDERALL [Concomitant]
     Indication: ATTENTION DEFICIT/HYPERACTIVITY DISORDER
  4. NICOTINE [Concomitant]
     Indication: SMOKING CESSATION THERAPY
  5. MICRONOR [Concomitant]
     Indication: MOOD ALTERED

REACTIONS (2)
  - Device expulsion [Recovered/Resolved]
  - Menorrhagia [Unknown]
